FAERS Safety Report 19629614 (Version 5)
Quarter: 2023Q1

REPORT INFORMATION
  Report Type: Report from Study
  Country: US (occurrence: US)
  Receive Date: 20210728
  Receipt Date: 20230210
  Transmission Date: 20230417
  Serious: Yes (Other)
  Sender: FDA-Public Use
  Company Number: US-NOVARTISTESTPH-NVSC2021US151026

PATIENT
  Sex: Male
  Weight: 96.615 kg

DRUGS (6)
  1. TREPROSTINIL [Suspect]
     Active Substance: TREPROSTINIL
     Indication: Pulmonary arterial hypertension
     Dosage: 40 NG/KG/MIN, CONT (STRENGTH: 5 MG/ML)
     Route: 058
     Dates: start: 20210628
  2. TREPROSTINIL [Suspect]
     Active Substance: TREPROSTINIL
     Dosage: 61 NG/KG/MIN, CONT (STRENGTH: 10 MG/ML)
     Route: 058
  3. TREPROSTINIL [Suspect]
     Active Substance: TREPROSTINIL
     Dosage: 61 NG/KG/MIN, CONT (STRENGTH: 10 MG/ML)
     Route: 058
  4. AMBRISENTAN [Suspect]
     Active Substance: AMBRISENTAN
     Indication: Product used for unknown indication
     Dosage: UNK
     Route: 065
  5. WARFARIN [Concomitant]
     Active Substance: WARFARIN
     Indication: Product used for unknown indication
     Dosage: UNK
     Route: 065
  6. TADALAFIL [Concomitant]
     Active Substance: TADALAFIL
     Indication: Product used for unknown indication
     Dosage: UNK
     Route: 065

REACTIONS (13)
  - Deafness [Unknown]
  - Nasal congestion [Unknown]
  - Limb discomfort [Unknown]
  - Flushing [Recovered/Resolved]
  - Weight increased [Unknown]
  - Fatigue [Unknown]
  - Infusion site pain [Unknown]
  - Infusion site erythema [Unknown]
  - Infusion site swelling [Unknown]
  - Infusion site reaction [Unknown]
  - Headache [Recovered/Resolved]
  - Nausea [Recovered/Resolved]
  - Product use issue [Unknown]
